FAERS Safety Report 8825435 (Version 3)
Quarter: 2015Q3

REPORT INFORMATION
  Report Type: Report from Study
  Country: US (occurrence: US)
  Receive Date: 20121004
  Receipt Date: 20150821
  Transmission Date: 20151125
  Serious: Yes (Other)
  Sender: FDA-Public Use
  Company Number: US-ROCHE-1130990

PATIENT
  Sex: Female

DRUGS (9)
  1. ADRIAMYCIN [Concomitant]
     Active Substance: DOXORUBICIN HYDROCHLORIDE
  2. SONATA (UNITED STATES) [Concomitant]
  3. AMITRIPTYLINE [Suspect]
     Active Substance: AMITRIPTYLINE
     Indication: PRODUCT USED FOR UNKNOWN INDICATION
     Route: 065
  4. TYLENOL [Concomitant]
     Active Substance: ACETAMINOPHEN
     Route: 048
  5. RITUXAN [Suspect]
     Active Substance: RITUXIMAB
     Indication: DIFFUSE LARGE B-CELL LYMPHOMA
     Route: 065
  6. PROZAC [Concomitant]
     Active Substance: FLUOXETINE HYDROCHLORIDE
  7. RITUXAN [Suspect]
     Active Substance: RITUXIMAB
     Indication: LYMPHOMA
     Route: 042
     Dates: start: 20000726
  8. PROZAC [Concomitant]
     Active Substance: FLUOXETINE HYDROCHLORIDE
  9. BENADRYL [Concomitant]
     Active Substance: DIPHENHYDRAMINE HYDROCHLORIDE

REACTIONS (21)
  - Hypoaesthesia [Unknown]
  - Diarrhoea [Recovered/Resolved]
  - Anxiety [Recovered/Resolved]
  - Tremor [Unknown]
  - Off label use [Unknown]
  - Axillary pain [Recovered/Resolved]
  - Malaise [Unknown]
  - Weight increased [Unknown]
  - Depression [Recovered/Resolved]
  - Dizziness [Unknown]
  - Dehydration [Unknown]
  - Feeling abnormal [Unknown]
  - Pain in extremity [Recovering/Resolving]
  - Nausea [Unknown]
  - Fatigue [Unknown]
  - Back pain [Unknown]
  - Malignant neoplasm progression [Unknown]
  - Paraesthesia [Unknown]
  - Decreased appetite [Unknown]
  - Poor quality sleep [Unknown]
  - Oral pain [Unknown]
